FAERS Safety Report 16662097 (Version 1)
Quarter: 2019Q3

REPORT INFORMATION
  Report Type: Report from Study
  Country: US (occurrence: US)
  Receive Date: 20190802
  Receipt Date: 20190802
  Transmission Date: 20191004
  Serious: No
  Sender: FDA-Public Use
  Company Number: US-EXELIXIS-CABO-19018016

PATIENT
  Sex: Male

DRUGS (4)
  1. CABOMETYX [Suspect]
     Active Substance: CABOZANTINIB S-MALATE
     Indication: RENAL CANCER
     Dosage: 40 MG, QD
     Route: 048
     Dates: start: 20171026
  2. CABOMETYX [Suspect]
     Active Substance: CABOZANTINIB S-MALATE
     Dosage: 40 MG, 2 WEEKS ON 1 WEEK OFF
     Route: 048
  3. ZYRTEC [Concomitant]
     Active Substance: CETIRIZINE HYDROCHLORIDE
  4. ZANTAC [Concomitant]
     Active Substance: RANITIDINE HYDROCHLORIDE

REACTIONS (1)
  - Limb discomfort [Not Recovered/Not Resolved]
